FAERS Safety Report 17443105 (Version 1)
Quarter: 2020Q1

REPORT INFORMATION
  Report Type: Report from Study
  Country: AR (occurrence: AR)
  Receive Date: 20200221
  Receipt Date: 20200221
  Transmission Date: 20200409
  Serious: Yes (Death)
  Sender: FDA-Public Use
  Company Number: AR-ROCHE-2549735

PATIENT

DRUGS (1)
  1. BEVACIZUMAB. [Suspect]
     Active Substance: BEVACIZUMAB
     Indication: HEREDITARY HAEMORRHAGIC TELANGIECTASIA
     Route: 065

REACTIONS (9)
  - Skin ulcer [Unknown]
  - Hypertension [Unknown]
  - Asthenia [Unknown]
  - Septic shock [Fatal]
  - Impaired healing [Unknown]
  - Nephropathy [Fatal]
  - Cardiac failure [Fatal]
  - Acute myocardial infarction [Fatal]
  - Myalgia [Unknown]
